FAERS Safety Report 20816948 (Version 1)
Quarter: 2022Q2

REPORT INFORMATION
  Report Type: Other
  Country: US (occurrence: None)
  Receive Date: 20220512
  Receipt Date: 20220512
  Transmission Date: 20220720
  Serious: No
  Sender: FDA-Public Use
  Company Number: US-ROCHE-3046515

PATIENT
  Sex: Female

DRUGS (6)
  1. OCREVUS [Suspect]
     Active Substance: OCRELIZUMAB
     Indication: Multiple sclerosis
     Dosage: PRN
     Route: 065
  2. AMPYRA [Concomitant]
     Active Substance: DALFAMPRIDINE
     Route: 048
  3. BACLOFEN [Concomitant]
     Active Substance: BACLOFEN
     Dosage: PRN
  4. HYDROXYZINE [Concomitant]
     Active Substance: HYDROXYZINE HYDROCHLORIDE
  5. XANAX [Concomitant]
     Active Substance: ALPRAZOLAM
  6. TRAMADOL [Concomitant]
     Active Substance: TRAMADOL

REACTIONS (9)
  - Abdominal discomfort [Unknown]
  - Musculoskeletal discomfort [Unknown]
  - Cognitive disorder [Unknown]
  - Depression [Unknown]
  - Lymphoedema [Unknown]
  - COVID-19 [Unknown]
  - Memory impairment [Unknown]
  - Peroneal nerve palsy [Unknown]
  - Dysarthria [Unknown]
